FAERS Safety Report 6894491-4 (Version None)
Quarter: 2010Q3

REPORT INFORMATION
  Report Type: 
  Country: None (occurrence: None)
  Receive Date: 20100802
  Receipt Date: 20100630
  Transmission Date: 20110219
  Serious: No
  Sender: FDA-Public Use
  Company Number: US-BAYER-201017731BCC

PATIENT
  Age: 2 Year
  Sex: Female
  Weight: 9.072 kg

DRUGS (1)
  1. MIDOL [Suspect]
     Indication: ACCIDENTAL DRUG INTAKE BY CHILD
     Dosage: AS USED: 220 MG  UNIT DOSE: 220 MG
     Route: 048
     Dates: start: 20100629

REACTIONS (1)
  - NO ADVERSE EVENT [None]
